FAERS Safety Report 5193147-6 (Version None)
Quarter: 2006Q4

REPORT INFORMATION
  Report Type: 
  Country: None (occurrence: None)
  Receive Date: 20061228
  Receipt Date: 20060530
  Transmission Date: 20070319
  Serious: No
  Sender: FDA-Public Use
  Company Number: US-GLAXOSMITHKLINE-A0607271A

PATIENT
  Sex: Male

DRUGS (3)
  1. AVODART [Suspect]
     Indication: DRUG USE FOR UNKNOWN INDICATION
     Dosage: .5MG UNKNOWN
     Route: 048
     Dates: start: 20060523, end: 20060527
  2. SEPTRA DS [Concomitant]
  3. BENICAR [Concomitant]

REACTIONS (2)
  - DIARRHOEA [None]
  - MUSCLE SPASMS [None]
